FAERS Safety Report 7587521-8 (Version None)
Quarter: 2011Q3

REPORT INFORMATION
  Report Type: 
  Country: None (occurrence: None)
  Receive Date: 20110704
  Receipt Date: 20110620
  Transmission Date: 20111222
  Serious: Yes (Hospitalization, Other)
  Sender: FDA-Public Use
  Company Number: US-ELI_LILLY_AND_COMPANY-US201106006288

PATIENT
  Age: 77 Year
  Sex: Male

DRUGS (6)
  1. FORTEO [Suspect]
     Indication: OSTEOPOROSIS
     Dosage: 20 UG, QD
     Dates: start: 20110421
  2. RAMIPRIL [Concomitant]
     Dosage: UNK, UNKNOWN
     Route: 065
  3. SEROQUEL [Concomitant]
     Dosage: UNK, UNKNOWN
     Route: 065
  4. GLUMETZA [Concomitant]
     Dosage: UNK, UNKNOWN
     Route: 065
  5. CRESTOR [Concomitant]
     Dosage: UNK, UNKNOWN
     Route: 065
  6. COREG [Concomitant]
     Dosage: UNK, UNKNOWN
     Route: 065

REACTIONS (6)
  - PNEUMONIA [None]
  - MALAISE [None]
  - FATIGUE [None]
  - SYNCOPE [None]
  - HEART RATE ABNORMAL [None]
  - UNRESPONSIVE TO STIMULI [None]
